FAERS Safety Report 4854807-7 (Version None)
Quarter: 2005Q4

REPORT INFORMATION
  Report Type: 
  Country: None (occurrence: None)
  Receive Date: 20051214
  Receipt Date: 20051214
  Transmission Date: 20060501
  Serious: Yes (Other)
  Sender: FDA-Public Use
  Company Number: None

PATIENT
  Sex: Female

DRUGS (2)
  1. BUPROPION HCL [Suspect]
     Dosage: 100 MG BID
     Dates: start: 20010701
  2. ZOLOFT [Concomitant]

REACTIONS (1)
  - NAUSEA [None]
